FAERS Safety Report 5697622-7 (Version None)
Quarter: 2008Q2

REPORT INFORMATION
  Report Type: 
  Country: None (occurrence: None)
  Receive Date: 20080408
  Receipt Date: 20080407
  Transmission Date: 20081010
  Serious: Yes (Death, Life-Threatening)
  Sender: FDA-Public Use
  Company Number: DE-ASTRAZENECA-2007PK00644

PATIENT
  Age: 16181 Day
  Sex: Female

DRUGS (14)
  1. SEROQUEL [Suspect]
     Route: 048
     Dates: start: 20061108, end: 20061109
  2. SEROQUEL [Suspect]
     Route: 048
     Dates: start: 20061110, end: 20061110
  3. SEROQUEL [Suspect]
     Route: 048
     Dates: start: 20061111, end: 20061112
  4. SEROQUEL [Suspect]
     Route: 048
     Dates: start: 20061113, end: 20061113
  5. SEROQUEL [Suspect]
     Route: 048
     Dates: start: 20061114, end: 20061116
  6. SEROQUEL [Suspect]
     Route: 048
     Dates: start: 20061117
  7. BISOHEXAL [Suspect]
     Route: 048
  8. LEVODOPA [Suspect]
     Route: 048
     Dates: start: 20061213
  9. CYMBALTA [Suspect]
     Route: 048
     Dates: start: 20061121, end: 20061126
  10. CYMBALTA [Suspect]
     Route: 048
     Dates: start: 20061127
  11. PANTOZOL [Concomitant]
  12. RIVOTRIL [Concomitant]
     Route: 048
     Dates: start: 20061121
  13. ZOP [Concomitant]
     Route: 048
     Dates: start: 20061031, end: 20061119
  14. ZOP [Concomitant]
     Route: 048
     Dates: start: 20061120

REACTIONS (1)
  - DEATH [None]
